FAERS Safety Report 16157872 (Version 1)
Quarter: 2019Q2

REPORT INFORMATION
  Report Type: Spontaneous
  Country: US (occurrence: US)
  Receive Date: 20190301
  Receipt Date: 20190301
  Transmission Date: 20190711
  Serious: Yes (Life-Threatening)
  Sender: FDA-Public Use
  Company Number: None

PATIENT
  Age: 65 Year
  Sex: Male
  Weight: 104.78 kg

DRUGS (1)
  1. DAPAGLIFLOZIN 10 MG [Suspect]
     Active Substance: DAPAGLIFLOZIN
     Indication: TYPE 2 DIABETES MELLITUS
     Route: 048
     Dates: start: 20170118, end: 20190215

REACTIONS (2)
  - Bladder cancer [None]
  - Bladder transitional cell carcinoma [None]

NARRATIVE: CASE EVENT DATE: 20190126
